FAERS Safety Report 14803239 (Version 1)
Quarter: 2018Q2

REPORT INFORMATION
  Report Type: Report from Study
  Country: None (occurrence: US)
  Receive Date: 20180425
  Receipt Date: 20180425
  Transmission Date: 20180711
  Serious: Yes (Other)
  Sender: FDA-Public Use
  Company Number: US-ABBVIE-17K-163-2008806-00

PATIENT
  Age: 61 Year
  Sex: Male
  Weight: 82.63 kg

DRUGS (3)
  1. TEMAZEPAM. [Concomitant]
     Active Substance: TEMAZEPAM
     Indication: PRODUCT USED FOR UNKNOWN INDICATION
  2. HUMIRA [Suspect]
     Active Substance: ADALIMUMAB
     Indication: CROHN^S DISEASE
     Route: 058
     Dates: start: 2016
  3. XIFAXAN [Concomitant]
     Active Substance: RIFAXIMIN
     Indication: PRODUCT USED FOR UNKNOWN INDICATION

REACTIONS (10)
  - Joint adhesion [Unknown]
  - Crohn^s disease [Recovered/Resolved]
  - Pancreatic cyst [Not Recovered/Not Resolved]
  - Penile size reduced [Recovered/Resolved]
  - Erectile dysfunction [Recovered/Resolved]
  - Decreased appetite [Not Recovered/Not Resolved]
  - Osteoarthritis [Not Recovered/Not Resolved]
  - Laryngitis [Recovering/Resolving]
  - Weight decreased [Not Recovered/Not Resolved]
  - Arthroscopy [Unknown]

NARRATIVE: CASE EVENT DATE: 2017
